FAERS Safety Report 19951776 (Version 5)
Quarter: 2022Q2

REPORT INFORMATION
  Report Type: Spontaneous
  Country: CA (occurrence: CA)
  Receive Date: 20211013
  Receipt Date: 20220613
  Transmission Date: 20220721
  Serious: Yes (Hospitalization, Other)
  Sender: FDA-Public Use
  Company Number: CA-PFIZER INC-2020129151

PATIENT
  Age: 60 Year
  Sex: Female
  Weight: 61.5 kg

DRUGS (7)
  1. IBRANCE [Suspect]
     Active Substance: PALBOCICLIB
     Indication: Breast cancer metastatic
     Dosage: 100 MG (TILL PROGRESSION)
     Route: 048
     Dates: start: 20200104
  2. IBRANCE [Suspect]
     Active Substance: PALBOCICLIB
     Dosage: UNK
     Route: 048
     Dates: start: 20200301
  3. IBRANCE [Suspect]
     Active Substance: PALBOCICLIB
     Dosage: 100 MG, CYCLIC (ONCE DAILY WITH FOOD FOR 21 DAYS, THEN 7 DAYS OFF; SWALLOW WHOLE, AVOID GRAPEFRUIT)
     Route: 048
     Dates: start: 20200325, end: 2020
  4. IBRANCE [Suspect]
     Active Substance: PALBOCICLIB
     Dosage: 100 MG, CYCLIC (ONCE DAILY WITH FOOD FOR 21 DAYS, THEN 7 DAYS OFF; SWALLOW WHOLE, AVOID GRAPEFRUIT)
     Route: 048
     Dates: start: 20200401, end: 2020
  5. IBRANCE [Suspect]
     Active Substance: PALBOCICLIB
     Dosage: 75 MG, CYCLIC (21 DAYS ON, 7 DAYS OFF)
     Route: 048
     Dates: start: 20210218
  6. LETROZOLE [Concomitant]
     Active Substance: LETROZOLE
     Indication: Breast cancer metastatic
     Dosage: UNK
  7. ZOLEDRONIC ACID [Concomitant]
     Active Substance: ZOLEDRONIC ACID
     Indication: Metastases to bone
     Dosage: UNK

REACTIONS (16)
  - Abdominal pain [Unknown]
  - Pulmonary fibrosis [Unknown]
  - Aortic arteriosclerosis [Unknown]
  - Osteonecrosis [Unknown]
  - Full blood count abnormal [Unknown]
  - Weight decreased [Recovering/Resolving]
  - Neutrophil count decreased [Unknown]
  - White blood cell count decreased [Unknown]
  - Haemoglobin decreased [Unknown]
  - Blood urea increased [Unknown]
  - Bone lesion [Unknown]
  - Diverticulum intestinal [Unknown]
  - Pathological fracture [Unknown]
  - Atelectasis [Unknown]
  - Hepatic steatosis [Unknown]
  - Neoplasm progression [Unknown]
